FAERS Safety Report 14732360 (Version 2)
Quarter: 2018Q3

REPORT INFORMATION
  Report Type: Spontaneous
  Country: US (occurrence: US)
  Receive Date: 20180409
  Receipt Date: 20180807
  Transmission Date: 20181010
  Serious: Yes (Other)
  Sender: FDA-Public Use
  Company Number: US-SUN PHARMACEUTICAL INDUSTRIES LTD-2018US-169486

PATIENT
  Age: 24 Year
  Sex: Female

DRUGS (6)
  1. GANCICLOVIR. [Suspect]
     Active Substance: GANCICLOVIR
     Indication: TRANSPLANT DYSFUNCTION
     Dosage: UNK
     Route: 065
  2. CIPROFLOXACIN. [Suspect]
     Active Substance: CIPROFLOXACIN
     Indication: TRANSPLANT DYSFUNCTION
     Dosage: UNK
     Route: 065
  3. MICAFUNGIN [Suspect]
     Active Substance: MICAFUNGIN
     Indication: TRANSPLANT DYSFUNCTION
     Dosage: UNK
     Route: 065
  4. VORICONAZOLE. [Suspect]
     Active Substance: VORICONAZOLE
     Indication: TRANSPLANT DYSFUNCTION
     Dosage: UNK
     Route: 065
  5. LINEZOLIDE [Suspect]
     Active Substance: LINEZOLID
     Indication: TRANSPLANT DYSFUNCTION
     Dosage: UNK
     Route: 065
  6. PIPERACILLIN/TAZOBACTAM [Suspect]
     Active Substance: PIPERACILLIN SODIUM\TAZOBACTAM SODIUM
     Indication: TRANSPLANT DYSFUNCTION
     Dosage: UNK
     Route: 065

REACTIONS (2)
  - Drug ineffective [Unknown]
  - Pleural effusion [Recovering/Resolving]
